FAERS Safety Report 9282516 (Version 4)
Quarter: 2013Q3

REPORT INFORMATION
  Report Type: Spontaneous
  Country: US (occurrence: US)
  Receive Date: 20130510
  Receipt Date: 20130809
  Transmission Date: 20140515
  Serious: Yes (Death, Hospitalization, Other)
  Sender: FDA-Public Use
  Company Number: US-JNJFOC-20130500700

PATIENT
  Age: 72 Year
  Sex: Female
  Weight: 109.77 kg

DRUGS (16)
  1. XARELTO [Suspect]
     Indication: PULMONARY EMBOLISM
     Route: 048
     Dates: start: 20130303, end: 20130421
  2. XARELTO [Suspect]
     Indication: DEEP VEIN THROMBOSIS
     Route: 048
     Dates: start: 20130303, end: 20130421
  3. XARELTO [Suspect]
     Indication: CEREBROVASCULAR ACCIDENT PROPHYLAXIS
     Route: 048
     Dates: start: 20130303, end: 20130421
  4. XARELTO [Suspect]
     Indication: ATRIAL FIBRILLATION
     Route: 048
     Dates: start: 20130303, end: 20130421
  5. BYSTOLIC [Concomitant]
     Indication: HYPERTENSION
     Route: 065
  6. NPH INSULIN [Concomitant]
     Indication: DIABETES MELLITUS
     Dosage: 70 (UNITS UNSPECIFIED) IN AM AND 50 (UNITS UNSPECIFIED) IN PM
  7. BENTYL [Concomitant]
     Indication: IRRITABLE BOWEL SYNDROME
     Route: 065
  8. LOSARTAN [Concomitant]
     Indication: HYPERTENSION
     Route: 065
  9. LASIX [Concomitant]
     Indication: CARDIAC FAILURE CONGESTIVE
     Route: 065
  10. LASIX [Concomitant]
     Indication: OEDEMA
     Route: 065
  11. FLOVENT [Concomitant]
     Route: 055
  12. GLIMEPIRIDE [Concomitant]
     Indication: DIABETES MELLITUS
     Route: 065
  13. LEVOTHYROXINE [Concomitant]
     Indication: HYPOTHYROIDISM
     Route: 048
  14. DILTIAZEM [Concomitant]
     Indication: ATRIAL FIBRILLATION
     Route: 065
  15. PANTOPRAZOLE [Concomitant]
     Indication: GASTROOESOPHAGEAL REFLUX DISEASE
     Route: 065
  16. PRAVASTATIN [Concomitant]
     Indication: BLOOD CHOLESTEROL INCREASED
     Route: 067

REACTIONS (3)
  - Death [Fatal]
  - Subcutaneous abscess [Not Recovered/Not Resolved]
  - Paraplegia [Not Recovered/Not Resolved]
